FAERS Safety Report 8770836 (Version 3)
Quarter: 2012Q4

REPORT INFORMATION
  Report Type: 
  Country: US (occurrence: US)
  Receive Date: 20120906
  Receipt Date: 20121005
  Transmission Date: 20130627
  Serious: Yes (Other)
  Sender: FDA-Public Use
  Company Number: US-BAYER-2012-090676

PATIENT
  Age: 83 Year
  Sex: Male

DRUGS (3)
  1. NEXAVAR [Suspect]
     Indication: RENAL CELL CARCINOMA
     Dosage: 200 mg, BID (1 am and 1 pm)
     Dates: start: 20111209
  2. NEXAVAR [Suspect]
     Indication: RENAL CELL CARCINOMA
     Dosage: 200 mg, BID (1 am and 1 pm)
     Dates: start: 201207, end: 20120824
  3. METFORMIN [Concomitant]
     Indication: DIABETES MELLITUS
     Route: 048

REACTIONS (5)
  - Lung disorder [Recovered/Resolved]
  - Abasia [Recovering/Resolving]
  - Glossodynia [Recovering/Resolving]
  - Blister [Recovered/Resolved]
  - Productive cough [Not Recovered/Not Resolved]
